FAERS Safety Report 11370657 (Version 1)
Quarter: 2015Q3

REPORT INFORMATION
  Report Type: Spontaneous
  Country: DK (occurrence: DK)
  Receive Date: 20150812
  Receipt Date: 20150812
  Transmission Date: 20151125
  Serious: Yes (Hospitalization)
  Sender: FDA-Public Use
  Company Number: DK-PFIZER INC-2014188763

PATIENT
  Age: 19 Year
  Sex: Male

DRUGS (3)
  1. FRAGMIN [Suspect]
     Active Substance: DALTEPARIN SODIUM
     Indication: PULMONARY EMBOLISM
     Dosage: DOSE: 12.500 IE DAILY, STRENGTH: 12.500 ANTI-XA IE/ML
     Route: 058
     Dates: start: 20140424, end: 20140501
  2. IBUPROFEN. [Concomitant]
     Active Substance: IBUPROFEN
     Indication: PAIN
     Dosage: 600 MG AS NEEDED, MAX 3 TIMES A DAY
     Dates: start: 20140421, end: 20140501
  3. PINEX [Concomitant]
     Active Substance: ACETAMINOPHEN
     Indication: PAIN
     Dosage: 500MG AS NEEDED, MAX 4 TIMES A DAY
     Dates: start: 20140421, end: 20140505

REACTIONS (2)
  - Liver disorder [Recovered/Resolved]
  - Hepatic enzyme increased [Recovered/Resolved]

NARRATIVE: CASE EVENT DATE: 20140426
